FAERS Safety Report 6390850-7 (Version None)
Quarter: 2009Q4

REPORT INFORMATION
  Report Type: 
  Country: None (occurrence: None)
  Receive Date: 20091006
  Receipt Date: 20090924
  Transmission Date: 20100525
  Serious: Yes (Other)
  Sender: FDA-Public Use
  Company Number: GB-GENENTECH-223203

PATIENT
  Sex: Male
  Weight: 69 kg

DRUGS (4)
  1. BEVACIZUMAB [Suspect]
     Indication: COLON CANCER
     Dosage: 7.5 MG/KG, Q3W
     Route: 042
     Dates: start: 20060117
  2. CAPECITABINE [Suspect]
     Indication: COLON CANCER
     Dosage: 1000 MG/M2, BID
     Route: 048
     Dates: start: 20060117, end: 20060303
  3. OXALIPLATIN [Suspect]
     Indication: COLON CANCER
     Dosage: 130 MG/M2, Q3W
     Route: 042
     Dates: start: 20060117
  4. OMEPRAZOLE [Concomitant]
     Indication: DRUG USE FOR UNKNOWN INDICATION
     Dates: start: 20051215

REACTIONS (2)
  - BLOOD LACTATE DEHYDROGENASE INCREASED [None]
  - NON-CARDIAC CHEST PAIN [None]
